FAERS Safety Report 6032179-2 (Version None)
Quarter: 2008Q4

REPORT INFORMATION
  Report Type: 
  Country: None (occurrence: None)
  Receive Date: 20081224
  Receipt Date: 20081219
  Transmission Date: 20090506
  Serious: Yes (Hospitalization)
  Sender: FDA-Public Use
  Company Number: 200814345

PATIENT
  Sex: Female

DRUGS (14)
  1. VIVAGLOBIN [Suspect]
     Dosage: 3.2 G DAILY SC
     Route: 058
     Dates: start: 20080830
  2. VIVAGLOBIN [Suspect]
     Dosage: 3.2 G DAILY SC
     Route: 058
     Dates: start: 20080908
  3. VIVAGLOBIN [Suspect]
     Dosage: 3.2 G DAILY SC
     Route: 058
     Dates: start: 20080914
  4. VIVAGLOBIN [Suspect]
     Dosage: 3.2 G DAILY SC
     Route: 058
     Dates: start: 20080921
  5. VIVAGLOBIN [Suspect]
     Dosage: 3.2 G DAILY SC
     Route: 058
     Dates: start: 20080928
  6. VIVAGLOBIN [Suspect]
     Dosage: 3.2 G DAILY SC
     Route: 058
     Dates: start: 20081012
  7. ZANTAC [Concomitant]
  8. SERTRALINE 50 [Concomitant]
  9. EFFORTIL [Concomitant]
  10. BUDESONIDE [Concomitant]
  11. ALBUTEROL [Concomitant]
  12. XYZAL [Concomitant]
  13. LANSOYL [Concomitant]
  14. FLU [Concomitant]

REACTIONS (18)
  - ARTHRALGIA [None]
  - BRONCHITIS [None]
  - FATIGUE [None]
  - HEPATOMEGALY [None]
  - HYPERSENSITIVITY [None]
  - INFLUENZA [None]
  - INFUSION RELATED REACTION [None]
  - JOINT SWELLING [None]
  - MALAISE [None]
  - MIGRAINE [None]
  - MYALGIA [None]
  - MYOPLASTY [None]
  - MYOSITIS [None]
  - NASAL OEDEMA [None]
  - NASOPHARYNGITIS [None]
  - OROPHARYNGEAL PAIN [None]
  - SERUM SICKNESS [None]
  - SYNOVITIS [None]
